FAERS Safety Report 6284460-X (Version None)
Quarter: 2009Q3

REPORT INFORMATION
  Report Type: 
  Country: None (occurrence: None)
  Receive Date: 20090727
  Receipt Date: 20090609
  Transmission Date: 20100115
  Serious: No
  Sender: FDA-Public Use
  Company Number: US-ALEXION-A200900463

PATIENT
  Sex: Female

DRUGS (1)
  1. SOLIRIS [Suspect]
     Dosage: UNK
     Route: 042
     Dates: start: 20090608

REACTIONS (1)
  - HEADACHE [None]
